FAERS Safety Report 17171365 (Version 1)
Quarter: 2019Q4

REPORT INFORMATION
  Report Type: Spontaneous
  Country: US (occurrence: US)
  Receive Date: 20191218
  Receipt Date: 20191218
  Transmission Date: 20200122
  Serious: No
  Sender: FDA-Public Use
  Company Number: US-SUPERNUS PHARMACEUTICALS, INC.-2019SUP00092

PATIENT
  Sex: Female

DRUGS (6)
  1. TROKENDI XR [Suspect]
     Active Substance: TOPIRAMATE
     Dosage: 50 MG, 1X/DAY
     Dates: start: 20190308, end: 20190309
  2. TROKENDI XR [Suspect]
     Active Substance: TOPIRAMATE
     Dosage: 25 MG, 1X/DAY
     Dates: start: 20190318, end: 20190318
  3. TROKENDI XR [Suspect]
     Active Substance: TOPIRAMATE
     Dosage: UNK
     Dates: start: 20190310, end: 20190310
  4. TROKENDI XR [Suspect]
     Active Substance: TOPIRAMATE
     Dosage: 50 MG, 1X/DAY
     Dates: start: 20190311, end: 20190316
  5. TROKENDI XR [Suspect]
     Active Substance: TOPIRAMATE
     Indication: PARAESTHESIA
     Dosage: 25 MG, 1X/DAY
     Dates: start: 20190301, end: 20190302
  6. TROKENDI XR [Suspect]
     Active Substance: TOPIRAMATE
     Dosage: 25 MG, 1X/DAY
     Dates: start: 20190304, end: 20190307

REACTIONS (9)
  - Drug ineffective for unapproved indication [Recovered/Resolved]
  - Gait inability [Unknown]
  - Paraesthesia [Recovering/Resolving]
  - Hypoaesthesia [Unknown]
  - Product dose omission [Recovered/Resolved]
  - Fear [Unknown]
  - Dysstasia [Unknown]
  - Burning sensation [Unknown]
  - Pain [Unknown]

NARRATIVE: CASE EVENT DATE: 201903
